FAERS Safety Report 6766636-8 (Version None)
Quarter: 2010Q2

REPORT INFORMATION
  Report Type: 
  Country: None (occurrence: None)
  Receive Date: 20100611
  Receipt Date: 20100527
  Transmission Date: 20101027
  Serious: Yes (Death, Hospitalization, Other)
  Sender: FDA-Public Use
  Company Number: US-ALEXION-A201000597

PATIENT

DRUGS (1)
  1. SOLIRIS [Suspect]
     Dosage: 900 MG, UNK
     Route: 042

REACTIONS (5)
  - ABDOMINAL PAIN [None]
  - ACUTE DISSEMINATED ENCEPHALOMYELITIS [None]
  - ESCHERICHIA INFECTION [None]
  - PULMONARY HAEMORRHAGE [None]
  - RESPIRATORY FAILURE [None]
